FAERS Safety Report 11932677 (Version 4)
Quarter: 2023Q4

REPORT INFORMATION
  Report Type: Report from Study
  Country: US (occurrence: US)
  Receive Date: 20160120
  Receipt Date: 20231012
  Transmission Date: 20240110
  Serious: Yes (Hospitalization)
  Sender: FDA-Public Use
  Company Number: US-VERTEX PHARMACEUTICALS-2016-000027

PATIENT
  Age: 26 Year
  Sex: Male

DRUGS (1)
  1. KALYDECO [Suspect]
     Active Substance: IVACAFTOR
     Indication: Cystic fibrosis
     Dosage: 150 MG (OFF MEDICATION FOR OVER A WEEK)
     Route: 048
     Dates: start: 20140811

REACTIONS (4)
  - Ulcer [Recovered/Resolved]
  - Gastric ulcer [Unknown]
  - Gastrooesophageal reflux disease [Unknown]
  - Ear infection [Unknown]

NARRATIVE: CASE EVENT DATE: 20160101
